FAERS Safety Report 8756685 (Version 3)
Quarter: 2014Q2

REPORT INFORMATION
  Report Type: Spontaneous
  Country: US (occurrence: US)
  Receive Date: 20120828
  Receipt Date: 20140529
  Transmission Date: 20141212
  Serious: Yes (Hospitalization)
  Sender: FDA-Public Use
  Company Number: US-BAYER-2012-086665

PATIENT
  Age: 35 Year
  Sex: Female
  Weight: 88.9 kg

DRUGS (4)
  1. YAZ [Suspect]
     Dosage: UNK
     Dates: start: 200412, end: 200505
  2. METFORMIN HCL [Concomitant]
  3. GLUCOPHAGE [Concomitant]
     Indication: POLYCYSTIC OVARIES
  4. BACTRIM [CO-TRIMOXAZOLE] [Concomitant]
     Indication: URINARY TRACT INFECTION

REACTIONS (10)
  - Thrombosis [None]
  - Deep vein thrombosis [None]
  - Pulmonary embolism [None]
  - Injury [None]
  - Pain [None]
  - Emotional distress [None]
  - Anxiety [None]
  - Psychological trauma [None]
  - Dyspnoea [None]
  - Gait disturbance [None]
